FAERS Safety Report 8982977 (Version 2)
Quarter: 2013Q1

REPORT INFORMATION
  Report Type: Spontaneous
  Country: BR (occurrence: BR)
  Receive Date: 20121224
  Receipt Date: 20130114
  Transmission Date: 20140127
  Serious: Yes (Hospitalization, Other)
  Sender: FDA-Public Use
  Company Number: PHHY2012BR115375

PATIENT
  Age: 74 Year
  Sex: Male

DRUGS (3)
  1. FORASEQ [Suspect]
     Indication: LUNG DISORDER
     Dosage: 2 DF, UNK (TWO CAPSULES OF EACH TREATMENT)
     Dates: start: 2010
  2. SPIRIVA [Suspect]
     Indication: LUNG DISORDER
     Dosage: 2 UKN, QD (2 CAPSULES PER DAY)
     Dates: start: 2010
  3. SERETIDE [Suspect]
     Indication: DYSPNOEA
     Dosage: 1 DF, QD (1 CAPSULE PER DAY)
     Dates: start: 2010

REACTIONS (3)
  - Myocardial infarction [Recovered/Resolved]
  - Dyspnoea [Recovered/Resolved]
  - Pneumonia [Recovered/Resolved]
